FAERS Safety Report 14690307 (Version 2)
Quarter: 2018Q2

REPORT INFORMATION
  Report Type: Spontaneous
  Country: DE (occurrence: DE)
  Receive Date: 20180328
  Receipt Date: 20180403
  Transmission Date: 20180711
  Serious: Yes (Death)
  Sender: FDA-Public Use
  Company Number: DE-DSJP-DSE-2018-111551

PATIENT

DRUGS (1)
  1. LIXIANA [Suspect]
     Active Substance: EDOXABAN TOSYLATE
     Indication: EXPOSURE VIA BODY FLUID
     Dosage: 60 MG, QD
     Dates: start: 201704, end: 2017

REACTIONS (2)
  - Stillbirth [Fatal]
  - Exposure via body fluid [Recovered/Resolved]

NARRATIVE: CASE EVENT DATE: 2017
